FAERS Safety Report 4532870-0 (Version None)
Quarter: 2004Q4

REPORT INFORMATION
  Report Type: 
  Country: None (occurrence: None)
  Receive Date: 20041221
  Receipt Date: 20041014
  Transmission Date: 20050328
  Serious: Yes (Other)
  Sender: FDA-Public Use
  Company Number: PHEH2004US11305

PATIENT
  Age: 19 Year
  Sex: Female

DRUGS (3)
  1. ZELNORM [Suspect]
     Indication: CONSTIPATION
     Dosage: 6 MG, QHS
     Route: 048
  2. ZELNORM [Suspect]
     Dosage: 6 MG, BID
     Route: 048
     Dates: end: 20041014
  3. ORAL CONTRACEPTIVE NOS [Concomitant]

REACTIONS (4)
  - BIOPSY COLON ABNORMAL [None]
  - COLITIS MICROSCOPIC [None]
  - CONSTIPATION [None]
  - DIARRHOEA [None]
